FAERS Safety Report 24996807 (Version 1)
Quarter: 2025Q1

REPORT INFORMATION
  Report Type: Spontaneous
  Country: CN (occurrence: CN)
  Receive Date: 20250221
  Receipt Date: 20250221
  Transmission Date: 20250409
  Serious: Yes (Life-Threatening, Other)
  Sender: NOVARTIS
  Company Number: CN-002147023-NVSC2025CN030141

PATIENT
  Age: 55 Year
  Sex: Female
  Weight: 66 kg

DRUGS (1)
  1. RIBOCICLIB [Suspect]
     Active Substance: RIBOCICLIB
     Indication: Breast cancer
     Dosage: 600 MG (QD D1-21 Q28D)
     Route: 048
     Dates: start: 20250127, end: 20250207

REACTIONS (3)
  - White blood cell count decreased [Unknown]
  - Myelosuppression [Unknown]
  - Neutrophil count decreased [Unknown]

NARRATIVE: CASE EVENT DATE: 20250207
